FAERS Safety Report 9131151 (Version 1)
Quarter: 2013Q1

REPORT INFORMATION
  Report Type: Spontaneous
  Country: ES (occurrence: US)
  Receive Date: 20130301
  Receipt Date: 20130301
  Transmission Date: 20140127
  Serious: Yes (Other)
  Sender: FDA-Public Use
  Company Number: US-PFIZER INC-2013069323

PATIENT
  Age: 34 Year
  Sex: Female

DRUGS (3)
  1. DILANTIN [Suspect]
     Indication: PROPHYLAXIS
     Dosage: 500 MG, 500 MG 4 HRS LATER
     Route: 042
     Dates: start: 19850603
  2. FUROSEMIDE [Concomitant]
     Dosage: 20 MG, UNK
     Route: 042
  3. MANNITOL [Concomitant]
     Dosage: 50 G, UNK
     Route: 042

REACTIONS (3)
  - Ophthalmoplegia [Recovered/Resolved]
  - Diplopia [Recovered/Resolved]
  - Eyelid ptosis [Recovered/Resolved]
